FAERS Safety Report 10222964 (Version 1)
Quarter: 2014Q2

REPORT INFORMATION
  Report Type: Report from Study
  Country: US (occurrence: US)
  Receive Date: 20140607
  Receipt Date: 20140607
  Transmission Date: 20141212
  Serious: Yes (Hospitalization, Other)
  Sender: FDA-Public Use
  Company Number: PHHY2014US066767

PATIENT
  Age: 61 Year
  Sex: Male

DRUGS (17)
  1. BASILIXIMAB [Suspect]
     Indication: RENAL TRANSPLANT
     Dosage: 20 MG, DAY 0
     Route: 042
     Dates: start: 20131230
  2. BASILIXIMAB [Suspect]
     Dosage: 20 MG, DAY 04
     Route: 042
     Dates: end: 20140103
  3. MYCOPHENOLATE MOFETIL [Suspect]
     Indication: RENAL TRANSPLANT
     Dosage: 1000 MG, BID
     Route: 048
     Dates: start: 20131230
  4. CALCIUM ACETATE [Concomitant]
     Dosage: UNK UKN, UNK
  5. MAXITROL [Concomitant]
     Dosage: UNK UKN, UNK
  6. DIPHENHYDRAMINE [Concomitant]
     Dosage: UNK UKN, UNK
  7. EPOGEN [Concomitant]
     Dosage: UNK UKN, UNK
  8. NEURONTIN [Concomitant]
     Dosage: UNK UKN, UNK
  9. HEPARIN FLUSH [Concomitant]
     Dosage: UNK UKN, UNK
  10. HYDRALAZINE [Concomitant]
     Dosage: UNK UKN, UNK
  11. LOPRESSOR [Concomitant]
     Dosage: UNK UKN, UNK
  12. NOVOLIN [Concomitant]
     Dosage: UNK UKN, UNK
  13. SENSIPAR [Concomitant]
     Dosage: UNK UKN, UNK
  14. TRIAMCINOLONE ACETONIDE [Concomitant]
     Dosage: UNK UKN, UNK
  15. TYLENOL EXTRA STRENGTH [Concomitant]
     Dosage: UNK UKN, UNK
  16. ZEMPLAR [Concomitant]
     Dosage: UNK UKN, UNK
  17. ANCEF [Concomitant]
     Dosage: UNK UKN, UNK
     Dates: start: 20131230

REACTIONS (7)
  - Ureteric stenosis [Not Recovered/Not Resolved]
  - Complications of transplanted kidney [Not Recovered/Not Resolved]
  - Arteriovenous fistula [Unknown]
  - Renal tubular necrosis [Unknown]
  - Haematuria [Unknown]
  - Anaemia [Unknown]
  - Dyspnoea [Unknown]
